FAERS Safety Report 8535528-6 (Version None)
Quarter: 2012Q3

REPORT INFORMATION
  Report Type: 
  Country: None (occurrence: None)
  Receive Date: 20120718
  Receipt Date: 20120718
  Transmission Date: 20120928
  Serious: Yes (Hospitalization)
  Sender: FDA-Public Use
  Company Number: None

PATIENT
  Sex: Female
  Weight: 146.0582 kg

DRUGS (19)
  1. SOD. CHL 0.9% [Concomitant]
  2. MICONAZOLE NITRATE POWDER [Concomitant]
  3. PRADAXA [Suspect]
     Indication: ATRIAL FIBRILLATION
     Dates: start: 20120712, end: 20120715
  4. ONDANSETRON [Concomitant]
  5. SPIRONOLACTONE [Concomitant]
  6. CEFAZOLIN [Concomitant]
  7. HYDROMORPHONE HYDROCHLORIDE [Concomitant]
  8. LEVOTHYROXINE HOME MED [Concomitant]
  9. OXYBUTYNIN [Concomitant]
  10. LISINOPRIL [Concomitant]
  11. NEOMYXIN/BACIT/POLY [Concomitant]
  12. CHLORHEXIDINE GLUCONATE [Concomitant]
  13. MAGNESIUM HYDROX [Concomitant]
  14. PANTOPRAZOLE [Concomitant]
  15. AMLODIPINE [Concomitant]
  16. ATENOLOL [Concomitant]
  17. CALCIUM [Concomitant]
  18. TRAMADOL HYDROCHLORIDE [Concomitant]
  19. DEX 5% [Concomitant]

REACTIONS (1)
  - RECTAL HAEMORRHAGE [None]
